FAERS Safety Report 5706554-7 (Version None)
Quarter: 2008Q2

REPORT INFORMATION
  Report Type: 
  Country: None (occurrence: None)
  Receive Date: 20080415
  Receipt Date: 20080401
  Transmission Date: 20081010
  Serious: Yes (Death)
  Sender: FDA-Public Use
  Company Number: CA-ELI_LILLY_AND_COMPANY-CA200804000325

PATIENT
  Age: 59 Year
  Sex: Female

DRUGS (10)
  1. CYMBALTA [Suspect]
     Dosage: 1 D/F, UNK
  2. ASPIRIN [Concomitant]
  3. MICARDIS [Concomitant]
  4. GABAPENTIN [Concomitant]
  5. CARVEDILOL [Concomitant]
  6. AMITRIPTYLINE HCL [Concomitant]
  7. PENTOXIFYLLINE [Concomitant]
  8. NIFEDIPINE [Concomitant]
  9. CODEINE SUL TAB [Concomitant]
  10. PREVACID [Concomitant]

REACTIONS (1)
  - OVERDOSE [None]
